FAERS Safety Report 5569040-3 (Version None)
Quarter: 2007Q4

REPORT INFORMATION
  Report Type: 
  Country: None (occurrence: None)
  Receive Date: 20071220
  Receipt Date: 20070529
  Transmission Date: 20080405
  Serious: No
  Sender: FDA-Public Use
  Company Number: A0653196A

PATIENT
  Sex: Male

DRUGS (7)
  1. AVODART [Suspect]
     Dosage: .5MG PER DAY
     Route: 048
  2. SINEMET [Concomitant]
  3. COMTAN [Concomitant]
  4. AZILECT [Concomitant]
  5. VITAMINS [Concomitant]
  6. ASPIRIN [Concomitant]
  7. COQ10 [Concomitant]

REACTIONS (1)
  - DRUG INEFFECTIVE [None]
